FAERS Safety Report 23235331 (Version 1)
Quarter: 2023Q4

REPORT INFORMATION
  Report Type: Spontaneous
  Country: CN (occurrence: CN)
  Receive Date: 20231128
  Receipt Date: 20231128
  Transmission Date: 20240110
  Serious: Yes (Life-Threatening, Hospitalization, Other)
  Sender: FDA-Public Use
  Company Number: CN-SA-SAC20231127000877

PATIENT
  Age: 51 Year
  Sex: Female

DRUGS (2)
  1. CLOPIDOGREL BISULFATE [Suspect]
     Active Substance: CLOPIDOGREL BISULFATE
     Indication: Acute coronary syndrome
     Dosage: 450 MG QD
     Route: 048
     Dates: start: 20231109, end: 20231115
  2. ASPIRIN [Suspect]
     Active Substance: ASPIRIN
     Indication: Acute coronary syndrome
     Dosage: 0.30 G QD
     Dates: start: 20231109, end: 20231109

REACTIONS (13)
  - Loss of consciousness [Recovering/Resolving]
  - Anaphylactic shock [Recovering/Resolving]
  - Asthma [Recovering/Resolving]
  - Sinus rhythm [Recovering/Resolving]
  - Dyspnoea [Recovering/Resolving]
  - Dyspnoea [Recovering/Resolving]
  - Dysphoria [Recovering/Resolving]
  - Orthopnoea [Recovering/Resolving]
  - Oxygen saturation decreased [Recovering/Resolving]
  - Urinary incontinence [Recovering/Resolving]
  - Blood pressure increased [Recovering/Resolving]
  - Blood pressure decreased [Recovering/Resolving]
  - Pruritus [Recovering/Resolving]

NARRATIVE: CASE EVENT DATE: 20231109
